FAERS Safety Report 5582695-2 (Version None)
Quarter: 2008Q1

REPORT INFORMATION
  Report Type: 
  Country: None (occurrence: None)
  Receive Date: 20080107
  Receipt Date: 20071226
  Transmission Date: 20080703
  Serious: Yes (Hospitalization)
  Sender: FDA-Public Use
  Company Number: FR-BRISTOL-MYERS SQUIBB COMPANY-14029300

PATIENT
  Age: 71 Year
  Sex: Male

DRUGS (2)
  1. HOLOXAN [Suspect]
     Indication: SARCOMA
     Dosage: 3 PERFUSIONS OF 8HRS OVR 24HRS.
     Route: 042
     Dates: start: 20071031, end: 20071101
  2. DOXORUBICIN HCL [Suspect]
     Indication: SARCOMA
     Route: 042
     Dates: start: 20071031, end: 20071031

REACTIONS (3)
  - CONFUSIONAL STATE [None]
  - DISORIENTATION [None]
  - ENCEPHALOPATHY [None]
